FAERS Safety Report 9913325 (Version 1)
Quarter: 2014Q1

REPORT INFORMATION
  Report Type: Spontaneous
  Country: US (occurrence: US)
  Receive Date: 20140220
  Receipt Date: 20140220
  Transmission Date: 20141002
  Serious: Yes (Hospitalization)
  Sender: FDA-Public Use
  Company Number: US-MYLANLABS-2014S1003062

PATIENT
  Age: 72 Year
  Sex: Male

DRUGS (9)
  1. LITHIUM [Suspect]
     Dosage: 300MG DAILY
     Route: 065
  2. LITHIUM [Suspect]
     Dosage: AT BEDTIME
     Route: 065
  3. ASPIRIN [Suspect]
     Route: 065
  4. LISINOPRIL [Suspect]
     Route: 065
  5. DULOXETINE [Concomitant]
     Route: 065
  6. OLANZAPINE [Concomitant]
     Route: 065
  7. PAROXETINE [Concomitant]
     Route: 065
  8. METFORMIN [Concomitant]
     Route: 065
  9. ARIPIPRAZOLE [Concomitant]
     Route: 065

REACTIONS (7)
  - Toxicity to various agents [Recovered/Resolved]
  - Hypotension [Unknown]
  - Hypothermia [Unknown]
  - Bradycardia [Unknown]
  - Apnoea [Unknown]
  - Hyponatraemia [Unknown]
  - Blood creatinine increased [Unknown]
